FAERS Safety Report 4830538-4 (Version None)
Quarter: 2005Q4

REPORT INFORMATION
  Report Type: 
  Country: None (occurrence: None)
  Receive Date: 20051115
  Receipt Date: 20051031
  Transmission Date: 20060501
  Serious: Yes (Life-Threatening, Hospitalization)
  Sender: FDA-Public Use
  Company Number: 2005-01801

PATIENT
  Age: 77 Year
  Sex: Female
  Weight: 56.3 kg

DRUGS (6)
  1. VELCADE [Suspect]
     Indication: MULTIPLE MYELOMA
     Dosage: 2.30 MG
     Dates: start: 20040322, end: 20041210
  2. GAS-X (SIMETICONE) [Concomitant]
  3. EXTRA STRENGTH TYLENOL [Concomitant]
  4. CALTRATE (CALCIUM CARBONATE) [Concomitant]
  5. VAGIFEM [Concomitant]
  6. NEURONTIN [Concomitant]

REACTIONS (2)
  - CLOSTRIDIUM COLITIS [None]
  - WEIGHT DECREASED [None]
